FAERS Safety Report 23965423 (Version 1)
Quarter: 2024Q2

REPORT INFORMATION
  Report Type: Other
  Country: US (occurrence: None)
  Receive Date: 20240612
  Receipt Date: 20240612
  Transmission Date: 20240716
  Serious: Yes (Hospitalization)
  Sender: FDA-Public Use
  Company Number: US-ROCHE-3576125

PATIENT
  Age: 62 Year
  Sex: Female
  Weight: 49.94 kg

DRUGS (6)
  1. OCREVUS [Suspect]
     Active Substance: OCRELIZUMAB
     Indication: Primary progressive multiple sclerosis
     Dosage: YES
     Route: 042
     Dates: start: 202306
  2. ALPRAZOLAM [Concomitant]
     Active Substance: ALPRAZOLAM
     Indication: Panic attack
     Dosage: STARTED 15 YEARS AGO.TAKES AS NEEDED. USUALLY TAKES 1 AT NIGHT AND 1?OCCASSIONALLY DURING THE DAY.
  3. CYCLOBENZAPRINE [Concomitant]
     Active Substance: CYCLOBENZAPRINE
     Dosage: STARTED LAST YEAR. TAKES AS NEEDED. USUALLY TAKES IT 2 TIME PER DAY
  4. GABAPENTIN [Concomitant]
     Active Substance: GABAPENTIN
     Indication: Muscle spasms
  5. ESCITALOPRAM [Concomitant]
     Active Substance: ESCITALOPRAM OXALATE
     Indication: Anxiety
  6. CEPHALEXIN [Concomitant]
     Active Substance: CEPHALEXIN

REACTIONS (9)
  - Gastric haemorrhage [Recovered/Resolved]
  - Urinary tract infection [Recovered/Resolved]
  - Sepsis [Recovered/Resolved]
  - Respiratory arrest [Recovered/Resolved]
  - Wound [Not Recovered/Not Resolved]
  - Wound infection [Not Recovered/Not Resolved]
  - Blood potassium decreased [Recovered/Resolved]
  - Haemorrhage [Recovered/Resolved]
  - Memory impairment [Not Recovered/Not Resolved]

NARRATIVE: CASE EVENT DATE: 20231201
